FAERS Safety Report 19075641 (Version 1)
Quarter: 2021Q1

REPORT INFORMATION
  Report Type: Spontaneous
  Country: US (occurrence: US)
  Receive Date: 20210331
  Receipt Date: 20210331
  Transmission Date: 20210420
  Serious: Yes (Life-Threatening, Hospitalization, Other)
  Sender: FDA-Public Use
  Company Number: US-GRANULES-US-2021GRALIT00214

PATIENT
  Age: 16 Year
  Sex: Female

DRUGS (9)
  1. IBUPROFEN. [Suspect]
     Active Substance: IBUPROFEN
     Indication: PRODUCT USED FOR UNKNOWN INDICATION
     Route: 048
  2. DIAZEPAM. [Interacting]
     Active Substance: DIAZEPAM
     Indication: SUPPORTIVE CARE
     Dosage: FOLLOWED BY INFUSION OF 1MG/KG OVER 24 HOURS
     Route: 065
  3. MELATONIN [Suspect]
     Active Substance: MELATONIN
     Indication: PRODUCT USED FOR UNKNOWN INDICATION
     Route: 048
  4. SODIUM BICARBONATE. [Interacting]
     Active Substance: SODIUM BICARBONATE
     Indication: SUPPORTIVE CARE
     Route: 065
  5. PREDNISONE. [Suspect]
     Active Substance: PREDNISONE
     Indication: PRODUCT USED FOR UNKNOWN INDICATION
     Route: 048
  6. NOREPINEPHRINE. [Interacting]
     Active Substance: NOREPINEPHRINE
     Indication: SUPPORTIVE CARE
     Route: 065
  7. POTASSIUM CHLORIDE. [Interacting]
     Active Substance: POTASSIUM CHLORIDE
     Indication: SUPPORTIVE CARE
     Route: 042
  8. HYDROXYCHLOROQUINE [Suspect]
     Active Substance: HYDROXYCHLOROQUINE
     Indication: PRODUCT USED FOR UNKNOWN INDICATION
     Route: 048
  9. MAGNESIUM SULFATE. [Interacting]
     Active Substance: MAGNESIUM SULFATE
     Indication: SUPPORTIVE CARE
     Route: 042

REACTIONS (7)
  - Circulatory collapse [Unknown]
  - Stupor [Unknown]
  - Lethargy [Unknown]
  - Electrocardiogram QRS complex prolonged [Unknown]
  - Confusional state [Unknown]
  - Hypotension [Recovered/Resolved]
  - Intentional overdose [Unknown]
